FAERS Safety Report 6904901-1 (Version None)
Quarter: 2010Q3

REPORT INFORMATION
  Report Type: 
  Country: None (occurrence: None)
  Receive Date: 20100804
  Receipt Date: 20090728
  Transmission Date: 20110219
  Serious: No
  Sender: FDA-Public Use
  Company Number: US-PFIZER INC-2009203229

PATIENT
  Sex: Female
  Weight: 90.703 kg

DRUGS (6)
  1. LYRICA [Suspect]
     Indication: FIBROMYALGIA
     Dosage: 150 MG, 2X/DAY
     Dates: start: 20081001
  2. EFFEXOR [Concomitant]
  3. VALSARTAN [Concomitant]
  4. SYNTHROID [Concomitant]
  5. AMITRIPTYLINE [Concomitant]
  6. PREMPRO [Concomitant]

REACTIONS (4)
  - DIZZINESS [None]
  - LACERATION [None]
  - PARAESTHESIA [None]
  - THERMAL BURN [None]
